FAERS Safety Report 7406959-2 (Version None)
Quarter: 2011Q2

REPORT INFORMATION
  Report Type: 
  Country: None (occurrence: None)
  Receive Date: 20110411
  Receipt Date: 20110405
  Transmission Date: 20111010
  Serious: No
  Sender: FDA-Public Use
  Company Number: US-PFIZER INC-2011040673

PATIENT
  Sex: Male

DRUGS (6)
  1. CHANTIX [Suspect]
     Dosage: 0.5 MG, 2X/DAY
     Route: 048
     Dates: start: 20110110, end: 20110113
  2. NAPROXEN [Concomitant]
     Dosage: 500 MG, TWICE A DAY AS NEEDED
     Dates: end: 20110128
  3. CHANTIX [Suspect]
     Dosage: 1 MG, 2X/DAY
     Route: 048
     Dates: start: 20110114, end: 20110128
  4. ALBUTEROL [Concomitant]
     Dosage: UNK, 1-2 PUFFS OF 4 HOURS AS NEEDED
     Route: 055
     Dates: end: 20110128
  5. ADVAIR HFA [Concomitant]
     Dosage: 250MG/50MG, 2X/DAY
     Route: 055
     Dates: end: 20110128
  6. CHANTIX [Suspect]
     Indication: TOBACCO USER
     Dosage: 0.5 MG, DAILY
     Route: 048
     Dates: start: 20110107, end: 20110109

REACTIONS (3)
  - ERECTILE DYSFUNCTION [None]
  - PAIN [None]
  - PAIN IN EXTREMITY [None]
